FAERS Safety Report 14666954 (Version 1)
Quarter: 2018Q1

REPORT INFORMATION
  Report Type: Spontaneous
  Country: FR (occurrence: FR)
  Receive Date: 20180322
  Receipt Date: 20180322
  Transmission Date: 20180509
  Serious: Yes (Other)
  Sender: FDA-Public Use
  Company Number: FR-MERCK KGAA-2044263

PATIENT
  Age: 47 Year
  Sex: Male

DRUGS (1)
  1. NOVOTHYROX [Suspect]
     Active Substance: LEVOTHYROXINE SODIUM
     Indication: PRODUCT USED FOR UNKNOWN INDICATION

REACTIONS (20)
  - Thyroglobulin decreased [None]
  - Hyperthyroidism [None]
  - Dizziness [None]
  - Affective disorder [None]
  - Asthenia [None]
  - Osteoarthritis [None]
  - Sleep disorder [None]
  - Hypothyroidism [None]
  - Fatigue [None]
  - Stress [None]
  - Loss of libido [None]
  - Insomnia [None]
  - Impaired work ability [None]
  - Arthralgia [None]
  - Laboratory test abnormal [None]
  - Thyroxine free increased [None]
  - Loss of personal independence in daily activities [None]
  - Headache [None]
  - Emotional distress [None]
  - Disturbance in attention [None]

NARRATIVE: CASE EVENT DATE: 20170629
